FAERS Safety Report 8432243-4 (Version None)
Quarter: 2012Q2

REPORT INFORMATION
  Report Type: 
  Country: None (occurrence: None)
  Receive Date: 20120613
  Receipt Date: 20120601
  Transmission Date: 20120825
  Serious: Yes (Hospitalization)
  Sender: FDA-Public Use
  Company Number: CA-PFIZER INC-2012133184

PATIENT
  Age: 51 Year
  Sex: Male

DRUGS (11)
  1. HYDROMORPHONE HYDROCHLORIDE [Concomitant]
     Dosage: UNK
     Dates: start: 20120515
  2. DALTEPARIN SODIUM [Concomitant]
     Dosage: UNK
     Dates: start: 20120515, end: 20120515
  3. LORAZEPAM [Concomitant]
     Dosage: UNK
     Dates: start: 20120516
  4. HYDROMORPHONE HYDROCHLORIDE [Concomitant]
     Dosage: UNK
     Dates: start: 20120514, end: 20120515
  5. TRAZODONE [Concomitant]
     Dosage: UNK
     Dates: start: 20120514
  6. DALTEPARIN SODIUM [Concomitant]
     Dosage: UNK
     Dates: start: 20120516, end: 20120516
  7. SUNITINIB MALATE [Suspect]
     Indication: RENAL CELL CARCINOMA
     Dosage: 50 MG, DAILY
     Route: 048
     Dates: start: 20090706, end: 20111130
  8. ENOXAPARIN [Concomitant]
     Dosage: UNK
     Dates: start: 20120514, end: 20120514
  9. DALTEPARIN SODIUM [Concomitant]
     Dosage: UNK
     Dates: start: 20120515
  10. PANTOPRAZOLE [Concomitant]
     Dosage: UNK
     Dates: start: 20120514
  11. LEVOTHYROXINE SODIUM [Concomitant]
     Dosage: UNK
     Dates: start: 20120515

REACTIONS (1)
  - OBSTRUCTION GASTRIC [None]
